FAERS Safety Report 21272103 (Version 2)
Quarter: 2022Q4

REPORT INFORMATION
  Report Type: Spontaneous
  Country: US (occurrence: US)
  Receive Date: 20220830
  Receipt Date: 20221020
  Transmission Date: 20230113
  Serious: No
  Sender: FDA-Public Use
  Company Number: US-KARYOPHARM-2022KPT000906

PATIENT

DRUGS (13)
  1. XPOVIO [Suspect]
     Active Substance: SELINEXOR
     Indication: Brain neoplasm malignant
     Dosage: 80 MG, WEEKLY
     Route: 048
     Dates: start: 202207, end: 202209
  2. ELIQUIS [Concomitant]
     Active Substance: APIXABAN
  3. ESCITALOPRAM [Concomitant]
     Active Substance: ESCITALOPRAM OXALATE
  4. GRANISETRON [Concomitant]
     Active Substance: GRANISETRON
  5. KEYTRUDA [Concomitant]
     Active Substance: PEMBROLIZUMAB
  6. LEVETIRACETAM [Concomitant]
     Active Substance: LEVETIRACETAM
  7. LISINOPRIL [Concomitant]
     Active Substance: LISINOPRIL
  8. LOSARTAN [Concomitant]
     Active Substance: LOSARTAN
  9. MIRALAX [Concomitant]
     Active Substance: POLYETHYLENE GLYCOL 3350
  10. MVASI [Concomitant]
     Active Substance: BEVACIZUMAB-AWWB
  11. LIDOCAINE [Concomitant]
     Active Substance: LIDOCAINE
  12. SIMVASTATIN [Concomitant]
     Active Substance: SIMVASTATIN
  13. THIAMINE [Concomitant]
     Active Substance: THIAMINE

REACTIONS (4)
  - Fatigue [Unknown]
  - Decreased appetite [Unknown]
  - Off label use [Unknown]
  - Drug ineffective [Unknown]

NARRATIVE: CASE EVENT DATE: 20220101
